FAERS Safety Report 17056143 (Version 1)
Quarter: 2019Q4

REPORT INFORMATION
  Report Type: Spontaneous
  Country: GB (occurrence: GB)
  Receive Date: 20191121
  Receipt Date: 20191121
  Transmission Date: 20200122
  Serious: Yes (Other)
  Sender: FDA-Public Use
  Company Number: GB-ROCHE-2468098

PATIENT
  Weight: 50 kg

DRUGS (1)
  1. ROACTEMRA [Suspect]
     Active Substance: TOCILIZUMAB
     Indication: RHEUMATOID ARTHRITIS
     Dosage: ACTEMRA VIALS 400 MG/20 ML 1. WEIGHT: 50 KG, DOSE: 200 MG
     Route: 042

REACTIONS (2)
  - Off label use [Unknown]
  - Hepatic function abnormal [Unknown]
